FAERS Safety Report 13366947 (Version 1)
Quarter: 2017Q1

REPORT INFORMATION
  Report Type: Spontaneous
  Country: US (occurrence: US)
  Receive Date: 20170323
  Receipt Date: 20170323
  Transmission Date: 20170429
  Serious: Yes (Life-Threatening)
  Sender: FDA-Public Use
  Company Number: None

PATIENT
  Age: 56 Year
  Sex: Female
  Weight: 132.3 kg

DRUGS (20)
  1. ABILIFY [Concomitant]
     Active Substance: ARIPIPRAZOLE
  2. ADVAIR HFA [Concomitant]
     Active Substance: FLUTICASONE PROPIONATE\SALMETEROL XINAFOATE
  3. SINGULAIR [Concomitant]
     Active Substance: MONTELUKAST SODIUM
  4. FLONASE [Concomitant]
     Active Substance: FLUTICASONE PROPIONATE
  5. CYMBALTA [Concomitant]
     Active Substance: DULOXETINE HYDROCHLORIDE
  6. DIAZEPAM. [Concomitant]
     Active Substance: DIAZEPAM
  7. LYRICA [Concomitant]
     Active Substance: PREGABALIN
  8. NY- STATIN [Concomitant]
  9. INJECTAFER [Suspect]
     Active Substance: FERRIC CARBOXYMALTOSE
     Indication: ANAEMIA
     Dosage: ?          OTHER FREQUENCY:DOSE ONE OF TWO;?
     Route: 042
     Dates: start: 20170321, end: 20170321
  10. DILTIAZEM. [Concomitant]
     Active Substance: DILTIAZEM
  11. LASIX [Concomitant]
     Active Substance: FUROSEMIDE
  12. ALBUTEROL. [Concomitant]
     Active Substance: ALBUTEROL
  13. FERROUS SULFATE ORAL [Concomitant]
  14. HYDROXYZINE [Concomitant]
     Active Substance: HYDROXYZINE HYDROCHLORIDE
  15. LEVOTHYROXINE. [Concomitant]
     Active Substance: LEVOTHYROXINE
  16. ROZERUM [Concomitant]
  17. PANTANOL EYE [Concomitant]
  18. PANTOPRAZOLE [Concomitant]
     Active Substance: PANTOPRAZOLE SODIUM
  19. WELLBUTRIN [Concomitant]
     Active Substance: BUPROPION HYDROCHLORIDE
  20. ZOFRAN [Concomitant]
     Active Substance: ONDANSETRON HYDROCHLORIDE

REACTIONS (3)
  - Throat irritation [None]
  - Pruritus [None]
  - Dysphagia [None]

NARRATIVE: CASE EVENT DATE: 20170321
